FAERS Safety Report 10442002 (Version 1)
Quarter: 2014Q3

REPORT INFORMATION
  Report Type: Spontaneous
  Country: JP (occurrence: JP)
  Receive Date: 20140909
  Receipt Date: 20140909
  Transmission Date: 20150326
  Serious: Yes (Other)
  Sender: FDA-Public Use
  Company Number: JP-GLAXOSMITHKLINE-B1031084A

PATIENT
  Age: 7 Decade
  Sex: Male

DRUGS (2)
  1. ZANTAC [Suspect]
     Active Substance: RANITIDINE HYDROCHLORIDE
     Indication: PRODUCT USED FOR UNKNOWN INDICATION
     Route: 042
  2. GLUCOSE [Concomitant]
     Active Substance: DEXTROSE
     Route: 042

REACTIONS (2)
  - Vasculitis [Unknown]
  - Pruritus [Unknown]
